FAERS Safety Report 8584549 (Version 2)
Quarter: 2013Q3

REPORT INFORMATION
  Report Type: Spontaneous
  Country: IT (occurrence: IT)
  Receive Date: 20120529
  Receipt Date: 20130708
  Transmission Date: 20140515
  Serious: Yes (Hospitalization)
  Sender: FDA-Public Use
  Company Number: IT-PERRIGO-12IT004356

PATIENT
  Age: 3 Year
  Sex: Male

DRUGS (3)
  1. IBUPROFEN 20 MG/ML CHILD GRAPE 660 [Suspect]
     Indication: PYREXIA
     Dosage: 10 MG/KG, TID
     Route: 048
  2. IBUPROFEN 20 MG/ML CHILD GRAPE 660 [Suspect]
     Indication: OROPHARYNGEAL PAIN
  3. IBUPROFEN 20 MG/ML CHILD GRAPE 660 [Suspect]
     Indication: VIRAL INFECTION

REACTIONS (8)
  - Gastritis haemorrhagic [Recovered/Resolved]
  - Gastric ulcer [Recovered/Resolved]
  - Pyloric stenosis [Recovered/Resolved]
  - Vomiting [Recovered/Resolved]
  - Weight decreased [Unknown]
  - Abdominal pain upper [Recovered/Resolved]
  - Melaena [Recovered/Resolved]
  - Haematemesis [Recovered/Resolved]
